FAERS Safety Report 8450683-4 (Version None)
Quarter: 2012Q2

REPORT INFORMATION
  Report Type: 
  Country: None (occurrence: None)
  Receive Date: 20120615
  Receipt Date: 20120615
  Transmission Date: 20120825
  Serious: No
  Sender: FDA-Public Use
  Company Number: None

PATIENT
  Sex: Male

DRUGS (2)
  1. RIBAVIRIN [Suspect]
     Dosage: 400MG BID PO
     Route: 048
  2. PEGASYS [Suspect]
     Dosage: 180MCG Q 7 DAYS SQ
     Route: 058
     Dates: start: 20120316, end: 20120530

REACTIONS (9)
  - DISEASE COMPLICATION [None]
  - RASH [None]
  - NEUTROPENIA [None]
  - ORAL CANDIDIASIS [None]
  - SKIN INFECTION [None]
  - ANAEMIA [None]
  - CHEST PAIN [None]
  - EXERCISE ELECTROCARDIOGRAM ABNORMAL [None]
  - CARDIAC STRESS TEST ABNORMAL [None]
